FAERS Safety Report 22062731 (Version 1)
Quarter: 2023Q1

REPORT INFORMATION
  Report Type: Spontaneous
  Country: CA (occurrence: CA)
  Receive Date: 20230306
  Receipt Date: 20230306
  Transmission Date: 20230417
  Serious: Yes (Other)
  Sender: FDA-Public Use
  Company Number: CA-JNJFOC-20230310697

PATIENT
  Sex: Male

DRUGS (6)
  1. REMICADE [Suspect]
     Active Substance: INFLIXIMAB
     Indication: X-linked lymphoproliferative syndrome
     Route: 041
  2. ERELZI [Suspect]
     Active Substance: ETANERCEPT-SZZS
     Indication: X-linked lymphoproliferative syndrome
     Route: 065
  3. BUDESONIDE [Concomitant]
     Active Substance: BUDESONIDE
     Indication: X-linked lymphoproliferative syndrome
  4. MESALAMINE [Concomitant]
     Active Substance: MESALAMINE
     Indication: X-linked lymphoproliferative syndrome
  5. PREDNISONE [Concomitant]
     Active Substance: PREDNISONE
     Indication: X-linked lymphoproliferative syndrome
     Route: 065
  6. PREDNISONE [Concomitant]
     Active Substance: PREDNISONE

REACTIONS (13)
  - Cholangitis acute [Recovered/Resolved]
  - Gastrointestinal haemorrhage [Recovered/Resolved]
  - Growth retardation [Recovered/Resolved]
  - Status epilepticus [Recovered/Resolved]
  - Colitis [Recovered/Resolved]
  - Osteoporosis [Recovered/Resolved]
  - Secondary adrenocortical insufficiency [Recovered/Resolved]
  - Cellulitis [Recovered/Resolved]
  - Pneumonia streptococcal [Recovered/Resolved]
  - Pyrexia [Recovered/Resolved]
  - Staphylococcal abscess [Recovered/Resolved]
  - Drug ineffective for unapproved indication [Recovered/Resolved]
  - Off label use [Recovered/Resolved]
